FAERS Safety Report 6860097-6 (Version None)
Quarter: 2010Q3

REPORT INFORMATION
  Report Type: 
  Country: None (occurrence: None)
  Receive Date: 20100720
  Receipt Date: 20100709
  Transmission Date: 20110219
  Serious: Yes (Other)
  Sender: FDA-Public Use
  Company Number: US-PFIZER INC-2010086722

PATIENT
  Sex: Male
  Weight: 115 kg

DRUGS (10)
  1. TOVIAZ [Suspect]
     Indication: PROSTATOMEGALY
     Dosage: 4 MG, DAILY
     Route: 048
     Dates: start: 20100630
  2. ALLOPURINOL [Concomitant]
     Indication: GOUT
     Dosage: UNK
  3. FERROUS SULFATE TAB [Concomitant]
     Indication: ANAEMIA
     Dosage: 225 MG, 2X/DAY
     Route: 048
  4. WARFARIN [Concomitant]
     Dosage: UNK
  5. ACETYLSALICYLIC ACID [Concomitant]
     Dosage: UNK, DAILY
  6. FUROSEMIDE [Concomitant]
     Dosage: UNK
  7. VITAMIN D [Concomitant]
     Dosage: UNK, ONCE A WEEK
  8. METRONIDAZOLE [Concomitant]
     Dosage: 500 MG, UNK
  9. ISOSORBIDE [Concomitant]
     Dosage: 50 MG, UNK
  10. CARVEDILOL [Concomitant]
     Dosage: 25 MG, UNK

REACTIONS (5)
  - BODY HEIGHT DECREASED [None]
  - DYSPNOEA [None]
  - FLUID RETENTION [None]
  - HYPERTENSION [None]
  - WEIGHT INCREASED [None]
